FAERS Safety Report 9015290 (Version 2)
Quarter: 2013Q1

REPORT INFORMATION
  Report Type: Spontaneous
  Country: US (occurrence: None)
  Receive Date: 20130103
  Receipt Date: 20130213
  Transmission Date: 20140127
  Serious: Yes (Other)
  Sender: FDA-Public Use
  Company Number: 2012P1068138

PATIENT
  Age: 53 Year
  Sex: Male
  Weight: 64.6 kg

DRUGS (16)
  1. FENTANYL CITRATE [Suspect]
     Indication: PREOPERATIVE CARE
     Dates: start: 20121214, end: 20121214
  2. 5-HYDROXYTRYPTOPHAN [Concomitant]
  3. ARGININE [Concomitant]
  4. ASTAXANTHIN [Concomitant]
  5. DIABETA [Concomitant]
  6. LYSINE [Concomitant]
  7. MELATONIN [Concomitant]
  8. MILK THISTLE [Concomitant]
  9. MULTIVITAMIN [Concomitant]
  10. OMEGA-3 [Concomitant]
  11. OMEPRAZOLE, DELAYED RELEASE [Concomitant]
  12. PRASTERONE [Concomitant]
  13. PSYLLIUM SEED WITH DEXTROSE [Concomitant]
  14. RED YEAST RICE [Concomitant]
  15. ZOLOFT [Concomitant]
  16. VITAMIN B COMPLEX/FOLIC ACID [Concomitant]

REACTIONS (2)
  - Sedation [None]
  - Respiratory rate decreased [None]
